FAERS Safety Report 9486204 (Version 1)
Quarter: 2013Q3

REPORT INFORMATION
  Report Type: Spontaneous
  Country: US (occurrence: None)
  Receive Date: 20130827
  Receipt Date: 20130827
  Transmission Date: 20140515
  Serious: Yes (Other)
  Sender: FDA-Public Use
  Company Number: None

PATIENT
  Age: 39 Year
  Sex: Female
  Weight: 76.2 kg

DRUGS (1)
  1. MIRENA [Suspect]
     Dates: start: 20130327, end: 20130821

REACTIONS (4)
  - Weight increased [None]
  - Hypertension [None]
  - Skin irritation [None]
  - Headache [None]
